FAERS Safety Report 23363923 (Version 1)
Quarter: 2024Q1

REPORT INFORMATION
  Report Type: Spontaneous
  Country: US (occurrence: None)
  Receive Date: 20240104
  Receipt Date: 20240104
  Transmission Date: 20240410
  Serious: No
  Sender: FDA-Public Use
  Company Number: 2023A290197

PATIENT
  Age: 25 Year
  Sex: Female

DRUGS (1)
  1. BYDUREON BCISE [Suspect]
     Active Substance: EXENATIDE
     Indication: Polycystic ovarian syndrome

REACTIONS (2)
  - Polycystic ovarian syndrome [Unknown]
  - Pain [Unknown]
